FAERS Safety Report 6656897-8 (Version None)
Quarter: 2010Q1

REPORT INFORMATION
  Report Type: 
  Country: None (occurrence: None)
  Receive Date: 20100329
  Receipt Date: 20100329
  Transmission Date: 20100710
  Serious: Yes (Life-Threatening, Hospitalization)
  Sender: FDA-Public Use
  Company Number: None

PATIENT
  Age: 76 Year
  Sex: Male
  Weight: 96.8 kg

DRUGS (2)
  1. WARFARIN SODIUM [Suspect]
     Indication: ATRIAL FIBRILLATION
  2. ALCOHOL/SALICYLIC ACID [Suspect]

REACTIONS (11)
  - ALCOHOL USE [None]
  - ANAEMIA [None]
  - COLON CANCER [None]
  - COLONIC POLYP [None]
  - GASTRIC HAEMORRHAGE [None]
  - GASTRITIS [None]
  - GASTROINTESTINAL HAEMORRHAGE [None]
  - HAEMORRHAGE [None]
  - NAUSEA [None]
  - POST PROCEDURAL COMPLICATION [None]
  - VOMITING [None]
